FAERS Safety Report 7800095-9 (Version None)
Quarter: 2011Q4

REPORT INFORMATION
  Report Type: 
  Country: None (occurrence: None)
  Receive Date: 20111004
  Receipt Date: 20110921
  Transmission Date: 20120403
  Serious: Yes (Other)
  Sender: FDA-Public Use
  Company Number: 2011SP029413

PATIENT
  Age: 22 Year
  Sex: Female
  Weight: 34.0198 kg

DRUGS (2)
  1. NORDETTE-28 [Concomitant]
  2. NEXPLANON [Suspect]
     Indication: CONTRACEPTION
     Dosage: 68 MG;   ;SBDE
     Dates: start: 20110110, end: 20110622

REACTIONS (3)
  - PREMATURE DELIVERY [None]
  - PREGNANCY WITH IMPLANT CONTRACEPTIVE [None]
  - MATERNAL EXPOSURE DURING PREGNANCY [None]
